FAERS Safety Report 17644935 (Version 1)
Quarter: 2020Q2

REPORT INFORMATION
  Report Type: Spontaneous
  Country: US (occurrence: US)
  Receive Date: 20200408
  Receipt Date: 20200408
  Transmission Date: 20200713
  Serious: No
  Sender: FDA-Public Use
  Company Number: None

PATIENT
  Age: 73 Year
  Sex: Female
  Weight: 56.7 kg

DRUGS (15)
  1. FREE STYLE [Concomitant]
  2. SALINE NASAL SPRAY [Concomitant]
     Active Substance: SODIUM CHLORIDE
  3. SIMETHICONE (DIMETHICONE) [Concomitant]
     Active Substance: DIMETHICONE
  4. SYSTANE ULTRA ONE [Concomitant]
  5. ENCOSAMINE + CHONDROITIN COMPLEX [Concomitant]
  6. VITAMIN C [Concomitant]
     Active Substance: ASCORBIC ACID
  7. RANITIDINE. [Concomitant]
     Active Substance: RANITIDINE
  8. DICLOFENAC [Concomitant]
     Active Substance: DICLOFENAC
  9. VITAMIN E [Concomitant]
     Active Substance: .ALPHA.-TOCOPHEROL
  10. PROLIA [Suspect]
     Active Substance: DENOSUMAB
     Indication: OSTEOPOROSIS
     Dosage: ?          OTHER ROUTE:INJECTION?
     Route: 058
     Dates: start: 20181214, end: 20190611
  11. METORMIN [Concomitant]
     Active Substance: METFORMIN HYDROCHLORIDE
  12. VITAMIN D [Concomitant]
     Active Substance: VITAMIN D NOS
  13. BITE GUARD [Concomitant]
  14. MULTIVITAMIN [Concomitant]
     Active Substance: VITAMINS
  15. CALCIUM [Concomitant]
     Active Substance: CALCIUM

REACTIONS (14)
  - Bone loss [None]
  - Tooth extraction [None]
  - Pain in jaw [None]
  - Eye pain [None]
  - Hypersensitivity [None]
  - Tooth disorder [None]
  - Parosmia [None]
  - Oropharyngeal discomfort [None]
  - Root canal infection [None]
  - Breath odour [None]
  - Headache [None]
  - Head discomfort [None]
  - Ocular discomfort [None]
  - Pain [None]

NARRATIVE: CASE EVENT DATE: 20190926
